FAERS Safety Report 13644163 (Version 2)
Quarter: 2017Q3

REPORT INFORMATION
  Report Type: Report from Study
  Country: US (occurrence: US)
  Receive Date: 20170612
  Receipt Date: 20170828
  Transmission Date: 20171127
  Serious: Yes (Death, Hospitalization)
  Sender: FDA-Public Use
  Company Number: US-ACTELION-A-NJ2017-154984

PATIENT
  Age: 50 Year
  Sex: Female

DRUGS (12)
  1. TYVASO [Concomitant]
     Active Substance: TREPROSTINIL
     Dosage: 54 MCG, 9 BREATHS 4 TIMES A DAY
     Route: 055
     Dates: start: 20150505
  2. SILDENAFIL. [Concomitant]
     Active Substance: SILDENAFIL
     Dosage: 20 MG, UNK
     Route: 065
     Dates: start: 20141212
  3. ADVAIR HFA [Concomitant]
     Active Substance: FLUTICASONE PROPIONATE\SALMETEROL XINAFOATE
  4. PLAQUENIL [Concomitant]
     Active Substance: HYDROXYCHLOROQUINE SULFATE
  5. LYRICA [Concomitant]
     Active Substance: PREGABALIN
  6. LASIX [Concomitant]
     Active Substance: FUROSEMIDE
  7. TRACLEER [Suspect]
     Active Substance: BOSENTAN
     Indication: PULMONARY ARTERIAL HYPERTENSION
     Dosage: 125 MG, QD
     Route: 048
     Dates: start: 20141212
  8. PROVENTIL [Concomitant]
     Active Substance: ALBUTEROL
  9. BACLOFEN. [Concomitant]
     Active Substance: BACLOFEN
  10. ATROVENT [Concomitant]
     Active Substance: IPRATROPIUM BROMIDE
  11. WARFARIN [Concomitant]
     Active Substance: WARFARIN
  12. ZANTAC [Concomitant]
     Active Substance: RANITIDINE HYDROCHLORIDE

REACTIONS (8)
  - Thrombosis [Recovered/Resolved]
  - Dehydration [Recovered/Resolved]
  - Delirium [Recovered/Resolved]
  - Acute kidney injury [Recovered/Resolved]
  - Pneumonia [Recovered/Resolved]
  - Diarrhoea [Recovered/Resolved]
  - Death [Fatal]
  - Hallucination [Recovered/Resolved]
